FAERS Safety Report 7039621-9 (Version None)
Quarter: 2010Q4

REPORT INFORMATION
  Report Type: 
  Country: None (occurrence: None)
  Receive Date: 20101012
  Receipt Date: 20101004
  Transmission Date: 20110411
  Serious: Yes (Other)
  Sender: FDA-Public Use
  Company Number: A0884761A

PATIENT
  Age: 37 Year
  Sex: Female

DRUGS (17)
  1. LAMICTAL [Suspect]
     Indication: BIPOLAR DISORDER
     Dosage: 300MG PER DAY
     Route: 048
     Dates: start: 20081001
  2. CYMBALTA [Concomitant]
  3. KLONOPIN [Concomitant]
  4. NEURONTIN [Concomitant]
  5. SIMVASTATIN [Concomitant]
  6. LOPID [Concomitant]
  7. SYNTHROID [Concomitant]
  8. PROPRANOLOL [Concomitant]
  9. METFORMIN [Concomitant]
  10. RANITIDINE [Concomitant]
  11. ZANAFLEX [Concomitant]
  12. BOTOX [Concomitant]
  13. CLARITIN [Concomitant]
  14. BENADRYL [Concomitant]
  15. SUDAFED 12 HOUR [Concomitant]
  16. MULTI-VITAMIN [Concomitant]
  17. EXCEDRIN (MIGRAINE) [Concomitant]

REACTIONS (6)
  - AGITATION [None]
  - AMNESIA [None]
  - CLAUSTROPHOBIA [None]
  - LOSS OF CONSCIOUSNESS [None]
  - NIGHTMARE [None]
  - PARAESTHESIA [None]
